FAERS Safety Report 4334835-0 (Version None)
Quarter: 2004Q2

REPORT INFORMATION
  Report Type: 
  Country: None (occurrence: None)
  Receive Date: 20040405
  Receipt Date: 20040323
  Transmission Date: 20050107
  Serious: Yes (Life-Threatening, Other)
  Sender: FDA-Public Use
  Company Number: 2004-03-1541

PATIENT
  Age: 57 Year
  Sex: Female

DRUGS (3)
  1. CLARITIN [Suspect]
     Indication: DRUG USE FOR UNKNOWN INDICATION
     Dosage: 10 MG BID ORAL
     Route: 048
  2. POLARAMINE [Suspect]
     Indication: DRUG USE FOR UNKNOWN INDICATION
  3. LORATADINE [Suspect]
     Indication: DRUG USE FOR UNKNOWN INDICATION

REACTIONS (1)
  - ANGIONEUROTIC OEDEMA [None]
